FAERS Safety Report 12744551 (Version 3)
Quarter: 2018Q4

REPORT INFORMATION
  Report Type: Spontaneous
  Country: US (occurrence: US)
  Receive Date: 20160914
  Receipt Date: 20181226
  Transmission Date: 20190204
  Serious: No
  Sender: FDA-Public Use
  Company Number: US-JAZZ-2016-US-009539

PATIENT
  Age: 41 Year
  Sex: Female

DRUGS (32)
  1. TRAMADOL HCL [Concomitant]
     Active Substance: TRAMADOL HYDROCHLORIDE
  2. CHROMIUM PICOLINATE [Concomitant]
     Active Substance: CHROMIUM PICOLINATE
  3. NATURE-THROID [Concomitant]
     Active Substance: THYROID, PORCINE
  4. IODINE. [Concomitant]
     Active Substance: IODINE
  5. XYREM [Suspect]
     Active Substance: SODIUM OXYBATE
     Dosage: 3 G, BID
     Route: 048
     Dates: start: 201204, end: 201209
  6. XYREM [Suspect]
     Active Substance: SODIUM OXYBATE
     Dosage: 4.5 G, BID
     Route: 048
     Dates: start: 201209
  7. PROMETHAZINE [Concomitant]
     Active Substance: PROMETHAZINE\PROMETHAZINE HYDROCHLORIDE
  8. CALCIUM CITRATE WITH VITAMIN D3 [Concomitant]
  9. MINIVELLE [Concomitant]
     Active Substance: ESTRADIOL
  10. ASCORBIC ACID. [Concomitant]
     Active Substance: ASCORBIC ACID
  11. MENADIONE [Concomitant]
     Active Substance: MENADIONE
  12. ZINC GLUCONATE [Concomitant]
     Active Substance: ZINC GLUCONATE
  13. FOLIC ACID. [Concomitant]
     Active Substance: FOLIC ACID
  14. DEMEROL [Concomitant]
     Active Substance: MEPERIDINE HYDROCHLORIDE
  15. MAGNESIUM [Concomitant]
     Active Substance: MAGNESIUM
  16. MAGNESIUM CITRATE. [Concomitant]
     Active Substance: MAGNESIUM CITRATE
  17. SELENIUM [Concomitant]
     Active Substance: SELENIUM
  18. ZINC ACETATE [Concomitant]
     Active Substance: ZINC ACETATE
  19. WESTHROID [Concomitant]
     Active Substance: THYROGLOBULIN
  20. XANAX [Concomitant]
     Active Substance: ALPRAZOLAM
  21. KLONOPIN [Concomitant]
     Active Substance: CLONAZEPAM
  22. DICLOFENAC [Suspect]
     Active Substance: DICLOFENAC
     Indication: MIGRAINE
  23. VERAPAMIL HYDROCHLORIDE. [Concomitant]
     Active Substance: VERAPAMIL HYDROCHLORIDE
  24. ALBUTEROL SULFATE. [Concomitant]
     Active Substance: ALBUTEROL SULFATE
  25. SPIRONOLACTONE. [Concomitant]
     Active Substance: SPIRONOLACTONE
  26. TRAZODONE HYDROCHLORIDE. [Concomitant]
     Active Substance: TRAZODONE HYDROCHLORIDE
  27. CALCARB [Concomitant]
  28. MELATONIN [Concomitant]
     Active Substance: MELATONIN
  29. ATIVAN [Concomitant]
     Active Substance: LORAZEPAM
  30. XYREM [Suspect]
     Active Substance: SODIUM OXYBATE
     Indication: NARCOLEPSY
     Dosage: 2.25 G, BID
     Route: 048
     Dates: start: 201203, end: 201204
  31. VITAMIN D3 [Concomitant]
     Active Substance: CHOLECALCIFEROL
  32. VERAPAMIL [Concomitant]
     Active Substance: VERAPAMIL HYDROCHLORIDE

REACTIONS (9)
  - Blood pressure fluctuation [Unknown]
  - Nausea [Recovered/Resolved]
  - Nasopharyngitis [Unknown]
  - Gastrointestinal disorder [Unknown]
  - Loss of personal independence in daily activities [Unknown]
  - Fatigue [Recovering/Resolving]
  - Spondylitis [Not Recovered/Not Resolved]
  - Migraine [Not Recovered/Not Resolved]
  - Intervertebral disc protrusion [Not Recovered/Not Resolved]

NARRATIVE: CASE EVENT DATE: 2016
